FAERS Safety Report 17360402 (Version 1)
Quarter: 2020Q1

REPORT INFORMATION
  Report Type: Spontaneous
  Country: US (occurrence: US)
  Receive Date: 20200117
  Receipt Date: 20200117
  Transmission Date: 20200409
  Serious: No
  Sender: FDA-Public Use
  Company Number: None

PATIENT
  Age: 63 Year
  Sex: Female

DRUGS (1)
  1. BOTOX [Suspect]
     Active Substance: ONABOTULINUMTOXINA
     Indication: MIGRAINE
     Dosage: ?          OTHER STRENGTH:100 U;?
     Route: 058
     Dates: start: 2019

REACTIONS (2)
  - Drug dispensed to wrong patient [None]
  - Manufacturing product shipping issue [None]

NARRATIVE: CASE EVENT DATE: 20200117
